FAERS Safety Report 11685209 (Version 1)
Quarter: 2015Q4

REPORT INFORMATION
  Report Type: Spontaneous
  Country: CH (occurrence: CH)
  Receive Date: 20151030
  Receipt Date: 20151030
  Transmission Date: 20160304
  Serious: Yes (Death, Other)
  Sender: FDA-Public Use
  Company Number: CH-ASTRAZENECA-2015SF03806

PATIENT
  Age: 64 Year
  Sex: Female

DRUGS (10)
  1. TRASTUZUMAB [Concomitant]
     Active Substance: TRASTUZUMAB
     Dates: start: 201407, end: 201501
  2. PACLITAXEL. [Suspect]
     Active Substance: PACLITAXEL
     Route: 065
     Dates: start: 201108, end: 201205
  3. PERJETA [Concomitant]
     Active Substance: PERTUZUMAB
     Dates: start: 201205, end: 201211
  4. PACLITAXEL. [Suspect]
     Active Substance: PACLITAXEL
     Dosage: ABRAXANE
     Route: 065
     Dates: start: 201407, end: 201501
  5. FULVESTRANT [Suspect]
     Active Substance: FULVESTRANT
     Indication: BREAST CANCER METASTATIC
     Route: 030
     Dates: start: 201205, end: 201211
  6. AROMASIN [Concomitant]
     Active Substance: EXEMESTANE
     Dates: start: 201108, end: 201205
  7. XELODA [Concomitant]
     Active Substance: CAPECITABINE
     Dates: start: 201108, end: 201205
  8. HERCEPTIN [Concomitant]
     Active Substance: TRASTUZUMAB
     Dates: start: 201205, end: 201211
  9. CAELYX [Concomitant]
     Active Substance: DOXORUBICIN HYDROCHLORIDE
     Dates: start: 201205, end: 201211
  10. HALAVEN [Concomitant]
     Active Substance: ERIBULIN MESYLATE
     Dates: start: 201211, end: 201407

REACTIONS (2)
  - Death [Fatal]
  - Metastases to central nervous system [Unknown]

NARRATIVE: CASE EVENT DATE: 201407
